FAERS Safety Report 4840300-4 (Version None)
Quarter: 2005Q4

REPORT INFORMATION
  Report Type: 
  Country: None (occurrence: None)
  Receive Date: 20051020
  Receipt Date: 20050707
  Transmission Date: 20060501
  Serious: No
  Sender: FDA-Public Use
  Company Number: 2005BH000621

PATIENT
  Age: 41 Year
  Sex: Female
  Weight: 101 kg

DRUGS (16)
  1. EXTRANEAL [Suspect]
     Dosage: 2L; EVERY DAY; IP
     Route: 032
     Dates: start: 20050624, end: 20050705
  2. LORAZEPAM [Concomitant]
  3. LISINOPRIL [Concomitant]
  4. SENSIPAR [Concomitant]
  5. FUROSEMIDE [Concomitant]
  6. DOCUSATE SODIUM [Concomitant]
  7. ROCALTROL [Concomitant]
  8. BISACODYL [Concomitant]
  9. LANTUS [Concomitant]
  10. TUMS [Concomitant]
  11. WELLBUTRIN [Concomitant]
  12. MIRALAX [Concomitant]
  13. ASPIRIN [Concomitant]
  14. LEVOXYL [Concomitant]
  15. NEURONTIN [Concomitant]
  16. HUMALOG [Concomitant]

REACTIONS (3)
  - RASH ERYTHEMATOUS [None]
  - RASH PAPULAR [None]
  - RASH PRURITIC [None]
